FAERS Safety Report 13075984 (Version 5)
Quarter: 2018Q4

REPORT INFORMATION
  Report Type: Report from Study
  Country: CA (occurrence: CA)
  Receive Date: 20161230
  Receipt Date: 20181023
  Transmission Date: 20190204
  Serious: Yes (Hospitalization, Other)
  Sender: FDA-Public Use
  Company Number: CA-TAKEDA-2016TUS021452

PATIENT
  Age: 40 Year
  Sex: Female

DRUGS (5)
  1. VEDOLIZUMAB [Suspect]
     Active Substance: VEDOLIZUMAB
     Indication: CROHN^S DISEASE
     Dosage: 300 MG, UNK
     Route: 042
     Dates: start: 20161111
  2. CALCIUM [Concomitant]
     Active Substance: CALCIUM
     Dosage: 500 MG, QD
  3. VEDOLIZUMAB [Suspect]
     Active Substance: VEDOLIZUMAB
     Dosage: 300 MG, Q4WEEKS
     Route: 042
     Dates: start: 20170908
  4. PREDNISONE. [Suspect]
     Active Substance: PREDNISONE
     Indication: PRODUCT USED FOR UNKNOWN INDICATION
     Dosage: UNK
     Route: 065
     Dates: start: 20161119
  5. VITAMIN D [Concomitant]
     Active Substance: CHOLECALCIFEROL
     Dosage: UNK

REACTIONS (13)
  - Haemoglobin decreased [Unknown]
  - Fatigue [Unknown]
  - Flatulence [Unknown]
  - Ear pain [Unknown]
  - Headache [Recovered/Resolved]
  - Splenomegaly [Unknown]
  - Diarrhoea [Unknown]
  - Abdominal distension [Unknown]
  - Influenza [Unknown]
  - Off label use [Unknown]
  - Abdominal pain upper [Recovered/Resolved]
  - Dizziness [Unknown]
  - Hot flush [Unknown]

NARRATIVE: CASE EVENT DATE: 201611
